FAERS Safety Report 11835696 (Version 2)
Quarter: 2016Q1

REPORT INFORMATION
  Report Type: Spontaneous
  Country: US (occurrence: US)
  Receive Date: 20151215
  Receipt Date: 20160118
  Transmission Date: 20160525
  Serious: Yes (Other)
  Sender: FDA-Public Use
  Company Number: US-BAYER-2015-488598

PATIENT
  Age: 28 Year
  Sex: Female

DRUGS (5)
  1. ESTRACE [Concomitant]
     Active Substance: ESTRADIOL
     Dosage: 0.01 %, UNK
     Route: 067
  2. KEFLEX [Concomitant]
     Active Substance: CEPHALEXIN
     Dosage: 500 MG, UNK
  3. VITAFOL [FOLIC ACID] [Concomitant]
  4. LIDOCAINE. [Concomitant]
     Active Substance: LIDOCAINE
     Dosage: 2 %, UNK
  5. MIRENA [Suspect]
     Active Substance: LEVONORGESTREL
     Indication: CONTRACEPTION
     Dosage: 20 MCG/24HR, CONT
     Route: 015
     Dates: start: 20131203, end: 20140514

REACTIONS (11)
  - Depression [None]
  - Mood swings [None]
  - Uterine perforation [None]
  - Feeling abnormal [None]
  - Vaginal infection [None]
  - Emotional disorder [None]
  - Loss of libido [None]
  - Device issue [None]
  - Dyspareunia [None]
  - Alopecia [None]
  - Fatigue [None]

NARRATIVE: CASE EVENT DATE: 201401
